FAERS Safety Report 5723416-X (Version None)
Quarter: 2008Q2

REPORT INFORMATION
  Report Type: 
  Country: None (occurrence: None)
  Receive Date: 20080430
  Receipt Date: 20080425
  Transmission Date: 20081010
  Serious: Yes (Other)
  Sender: FDA-Public Use
  Company Number: PHHY2008JP04201

PATIENT

DRUGS (3)
  1. COMTAN [Suspect]
     Indication: DRUG EFFECT DECREASED
     Route: 048
  2. CARBIDOPA AND LEVODOPA [Concomitant]
     Route: 048
  3. SELEGILINE HCL [Concomitant]
     Route: 048

REACTIONS (1)
  - INTERSTITIAL LUNG DISEASE [None]
